FAERS Safety Report 5318013-4 (Version None)
Quarter: 2007Q2

REPORT INFORMATION
  Report Type: 
  Country: None (occurrence: None)
  Receive Date: 20070507
  Receipt Date: 20070425
  Transmission Date: 20071010
  Serious: Yes (Hospitalization)
  Sender: FDA-Public Use
  Company Number: GB-ROCHE-495581

PATIENT
  Age: 57 Year
  Sex: Male
  Weight: 116 kg

DRUGS (4)
  1. XENICAL [Suspect]
     Indication: OBESITY
     Route: 048
     Dates: start: 20070403
  2. QUININE SULFATE [Concomitant]
     Indication: EPILEPSY
     Route: 048
  3. VALPROATE SODIUM [Concomitant]
     Indication: EPILEPSY
     Route: 048
  4. BENDROFLUMETHIAZIDE [Concomitant]
     Route: 048

REACTIONS (2)
  - HYPERHIDROSIS [None]
  - PALPITATIONS [None]
